FAERS Safety Report 15957501 (Version 2)
Quarter: 2019Q1

REPORT INFORMATION
  Report Type: Spontaneous
  Country: US (occurrence: US)
  Receive Date: 20190213
  Receipt Date: 20190329
  Transmission Date: 20190417
  Serious: No
  Sender: FDA-Public Use
  Company Number: US-SA-2019SA036608

PATIENT

DRUGS (1)
  1. SOLIQUA 100/33 [Suspect]
     Active Substance: INSULIN GLARGINE\LIXISENATIDE
     Dosage: UNK
     Route: 065
     Dates: start: 20190117

REACTIONS (15)
  - Vision blurred [Unknown]
  - Panic reaction [Unknown]
  - Asthenia [Unknown]
  - Vertigo [Unknown]
  - Fear [Unknown]
  - Swelling [Unknown]
  - Mental disorder [Unknown]
  - Somnolence [Unknown]
  - Dizziness [Unknown]
  - Tension headache [Unknown]
  - Hyperhidrosis [Unknown]
  - Feeling abnormal [Unknown]
  - Throat tightness [Unknown]
  - Dysgeusia [Unknown]
  - Chest discomfort [Unknown]
